FAERS Safety Report 7788017-0 (Version None)
Quarter: 2011Q3

REPORT INFORMATION
  Report Type: 
  Country: None (occurrence: None)
  Receive Date: 20110927
  Receipt Date: 20110913
  Transmission Date: 20111222
  Serious: No
  Sender: FDA-Public Use
  Company Number: SPI201100256

PATIENT
  Age: 30 Year
  Sex: Female

DRUGS (2)
  1. AMITIZA [Suspect]
     Indication: CONSTIPATION
     Dosage: 24 MCG, BID, ORAL ; 24 MCG, QD, ORAL
     Route: 048
     Dates: start: 20110901
  2. AMITIZA [Suspect]
     Indication: CONSTIPATION
     Dosage: 24 MCG, BID, ORAL ; 24 MCG, QD, ORAL
     Route: 048
     Dates: start: 20110801, end: 20110901

REACTIONS (3)
  - HEADACHE [None]
  - NAUSEA [None]
  - DYSPNOEA [None]
